FAERS Safety Report 7525422-1 (Version None)
Quarter: 2011Q2

REPORT INFORMATION
  Report Type: 
  Country: None (occurrence: None)
  Receive Date: 20110606
  Receipt Date: 20110525
  Transmission Date: 20111010
  Serious: Yes (Other)
  Sender: FDA-Public Use
  Company Number: GB-ROCHE-775054

PATIENT
  Sex: Female
  Weight: 49.5 kg

DRUGS (5)
  1. CISPLATIN [Suspect]
     Dosage: DOSE REPORTED AS 100,  CYCLE 3
     Route: 042
     Dates: start: 20090519
  2. BEVACIZUMAB [Suspect]
     Dosage: DOSE REPORTED AS 502
     Route: 042
     Dates: start: 20090519
  3. EPIRUBICIN [Suspect]
     Dosage: DOSE REPORTED AS 85, CYCLE 3
     Route: 042
     Dates: start: 20090519
  4. CAPECITABINE [Suspect]
     Dosage: DOSE REPORTED AS 45150, CYCLE:3
     Route: 048
     Dates: start: 20090319
  5. BEVACIZUMAB [Suspect]
     Dosage: START DATE REPORTED AS 19 SEP 2009 (PRE OP) AND STOP DATE REPORTED AS 09 APRIL 2010 ( POST OP)
     Route: 042
     Dates: start: 20090919, end: 20100409

REACTIONS (2)
  - NEUROTOXICITY [None]
  - DIZZINESS [None]
